FAERS Safety Report 4493981-1 (Version None)
Quarter: 2004Q4

REPORT INFORMATION
  Report Type: 
  Country: None (occurrence: None)
  Receive Date: 20041103
  Receipt Date: 20041103
  Transmission Date: 20050328
  Serious: Yes (Life-Threatening, Hospitalization)
  Sender: FDA-Public Use
  Company Number: None

PATIENT
  Age: 49 Year
  Sex: Female
  Weight: 56.7 kg

DRUGS (8)
  1. GAMMAGARD S/D [Suspect]
     Indication: HYPOGAMMAGLOBULINAEMIA
     Dosage: IV EVERY 4 WEEKS
     Route: 042
     Dates: start: 20040210, end: 20041004
  2. GAMMAGARD S/D [Suspect]
     Indication: OSTEOMYELITIS
     Dosage: IV EVERY 4 WEEKS
     Route: 042
     Dates: start: 20040210, end: 20041004
  3. GAMMAGARD S/D [Suspect]
  4. GAMMAGARD S/D [Suspect]
  5. GAMMAGARD S/D [Suspect]
  6. GAMMAGARD S/D [Suspect]
  7. GAMMAGARD S/D [Suspect]
  8. GAMMAGARD S/D [Suspect]

REACTIONS (6)
  - BLOOD IMMUNOGLOBULIN G DECREASED [None]
  - COMA [None]
  - GENERAL PHYSICAL HEALTH DETERIORATION [None]
  - HYPOGAMMAGLOBULINAEMIA [None]
  - PAIN [None]
  - SINUSITIS [None]
